FAERS Safety Report 4378666-4 (Version None)
Quarter: 2004Q2

REPORT INFORMATION
  Report Type: 
  Country: None (occurrence: None)
  Receive Date: 20040610
  Receipt Date: 20040517
  Transmission Date: 20050107
  Serious: Yes (Life-Threatening, Hospitalization)
  Sender: FDA-Public Use
  Company Number: DE 2004 0026

PATIENT
  Age: 65 Year
  Sex: Male

DRUGS (4)
  1. DOTAREM -MEGLUMINE GADOTERATE [Suspect]
     Dosage: 17 ML PER DAY
     Route: 042
     Dates: start: 20040517
  2. MARCUMAR [Concomitant]
  3. VALIUM [Concomitant]
  4. NACL [Concomitant]

REACTIONS (9)
  - ANAPHYLACTIC SHOCK [None]
  - CONVULSION [None]
  - ERUCTATION [None]
  - HEART RATE DECREASED [None]
  - HYPERHIDROSIS [None]
  - MYOCARDIAL INFARCTION [None]
  - NAUSEA [None]
  - PALLOR [None]
  - VENTRICULAR FIBRILLATION [None]
